FAERS Safety Report 4925046-6 (Version None)
Quarter: 2006Q1

REPORT INFORMATION
  Report Type: 
  Country: None (occurrence: None)
  Receive Date: 20060222
  Receipt Date: 20060213
  Transmission Date: 20060701
  Serious: Yes (Other)
  Sender: FDA-Public Use
  Company Number: 2006-02-0539

PATIENT
  Age: 52 Year
  Sex: Female
  Weight: 74.3899 kg

DRUGS (3)
  1. RIBAVIRIN [Suspect]
     Indication: HEPATITIS C
     Dates: start: 20050501
  2. INFERGEN [Suspect]
     Indication: HEPATITIS C
     Dates: start: 20050501
  3. NEUPOGEN [Concomitant]

REACTIONS (2)
  - APLASIA PURE RED CELL [None]
  - DRUG INEFFECTIVE [None]
